FAERS Safety Report 10178175 (Version 2)
Quarter: 2014Q2

REPORT INFORMATION
  Report Type: Spontaneous
  Country: FR (occurrence: FR)
  Receive Date: 20140519
  Receipt Date: 20140528
  Transmission Date: 20141212
  Serious: Yes (Hospitalization)
  Sender: FDA-Public Use
  Company Number: FR-JNJFOC-20140502445

PATIENT
  Age: 88 Year
  Sex: Male

DRUGS (12)
  1. ZYTIGA [Suspect]
     Indication: PROSTATE CANCER
     Dosage: ON AN UNSPECIFIED DATE PATIENT^S DOSE OF ABIRATERONE ACETATE WAS DECREASED
     Route: 048
  2. ZYTIGA [Suspect]
     Indication: PROSTATE CANCER
     Dosage: PATIENT RECEIVED 1000MG 2 TIMES IN A DAY(250MG 8 TABLETS IN A DAY).
     Route: 048
     Dates: start: 20140505
  3. ZYTIGA [Suspect]
     Indication: PROSTATE CANCER
     Route: 048
     Dates: start: 20140410
  4. PIPRAM [Concomitant]
     Indication: PRODUCT USED FOR UNKNOWN INDICATION
     Route: 065
  5. EXACYL [Concomitant]
     Indication: PRODUCT USED FOR UNKNOWN INDICATION
     Route: 065
  6. TAHOR [Concomitant]
     Indication: HYPERCHOLESTEROLAEMIA
     Route: 065
  7. METFORMINE [Concomitant]
     Indication: HYPOGLYCAEMIA
     Route: 065
  8. IMOVANE [Concomitant]
     Indication: PRODUCT USED FOR UNKNOWN INDICATION
     Route: 065
  9. VICTOZA [Concomitant]
     Indication: PRODUCT USED FOR UNKNOWN INDICATION
     Route: 065
  10. SOLUPRED [Concomitant]
     Indication: PRODUCT USED FOR UNKNOWN INDICATION
     Route: 065
  11. PRITOR [Concomitant]
     Indication: HYPERTENSION
     Route: 048
  12. SEROPLEX [Concomitant]
     Indication: DEPRESSION

REACTIONS (4)
  - Vomiting [Recovering/Resolving]
  - Blood pressure increased [Recovering/Resolving]
  - Extra dose administered [Unknown]
  - Drug dose omission [Unknown]
